FAERS Safety Report 23464356 (Version 1)
Quarter: 2024Q1

REPORT INFORMATION
  Report Type: Spontaneous
  Country: CN (occurrence: CN)
  Receive Date: 20240201
  Receipt Date: 20240201
  Transmission Date: 20240410
  Serious: Yes (Other)
  Sender: FDA-Public Use
  Company Number: CN-BRISTOL-MYERS SQUIBB COMPANY-2024-013632

PATIENT
  Sex: Male

DRUGS (1)
  1. BARACLUDE [Suspect]
     Active Substance: ENTECAVIR
     Indication: Hepatitis B
     Dosage: FREQ: ONCE A DAY, INTERMITTENTLY
     Route: 048
     Dates: start: 2019

REACTIONS (10)
  - Treatment noncompliance [Unknown]
  - Hepatitis B reactivation [Unknown]
  - Renal impairment [Unknown]
  - Protein urine present [Unknown]
  - Creatinine urine increased [Unknown]
  - Back pain [Unknown]
  - Pain [Unknown]
  - Muscular weakness [Unknown]
  - Nightmare [Unknown]
  - Sexual dysfunction [Unknown]
